FAERS Safety Report 9495320 (Version 3)
Quarter: 2013Q3

REPORT INFORMATION
  Report Type: Spontaneous
  Country: US (occurrence: US)
  Receive Date: 20130903
  Receipt Date: 20130918
  Transmission Date: 20140515
  Serious: Yes (Other)
  Sender: FDA-Public Use
  Company Number: US-GLAXOSMITHKLINE-A1023782A

PATIENT
  Age: 59 Year
  Sex: Female
  Weight: 83.9 kg

DRUGS (14)
  1. VOTRIENT [Suspect]
     Indication: MALIGNANT URINARY TRACT NEOPLASM
     Dosage: 800MG PER DAY
     Route: 048
     Dates: start: 20130408, end: 20130708
  2. BIOTIN [Concomitant]
  3. VITAMIN D3 [Concomitant]
  4. COQ10 [Concomitant]
  5. MELOXICAM [Concomitant]
  6. FUROSEMIDE [Concomitant]
  7. VITAMIN B COMPLEX + VITAMIN C [Concomitant]
  8. DEXILANT [Concomitant]
  9. ARMOUR THYROID [Concomitant]
  10. METFORMIN [Concomitant]
  11. MICARDIS [Concomitant]
  12. ULORIC [Concomitant]
  13. LABETALOL [Concomitant]
  14. VITAMIN D2 [Concomitant]

REACTIONS (13)
  - Metastases to central nervous system [Not Recovered/Not Resolved]
  - Craniotomy [Recovered/Resolved]
  - Blister [Recovered/Resolved]
  - Burning sensation [Recovered/Resolved]
  - Skin ulcer [Recovered/Resolved]
  - Adverse drug reaction [Recovered/Resolved]
  - Hair colour changes [Recovered/Resolved]
  - Skin discolouration [Recovered/Resolved]
  - Palmar-plantar erythrodysaesthesia syndrome [Recovered/Resolved]
  - Hyperkeratosis [Recovered/Resolved]
  - Peripheral sensory neuropathy [Recovered/Resolved]
  - Alopecia [Recovered/Resolved]
  - Disease progression [Unknown]
